FAERS Safety Report 21203252 (Version 1)
Quarter: 2022Q3

REPORT INFORMATION
  Report Type: Spontaneous
  Country: US (occurrence: US)
  Receive Date: 20220811
  Receipt Date: 20220811
  Transmission Date: 20221026
  Serious: No
  Sender: FDA-Public Use
  Company Number: US-PFIZER INC-202201048202

PATIENT
  Age: 66 Year
  Sex: Female

DRUGS (1)
  1. CELEBREX [Suspect]
     Active Substance: CELECOXIB
     Indication: Back disorder
     Dosage: 200 MG, 2X/DAY
     Route: 048

REACTIONS (4)
  - Gastric disorder [Unknown]
  - Bradykinesia [Unknown]
  - Body height decreased [Not Recovered/Not Resolved]
  - Off label use [Unknown]
